FAERS Safety Report 10483551 (Version 4)
Quarter: 2015Q2

REPORT INFORMATION
  Report Type: Spontaneous
  Country: KR (occurrence: None)
  Receive Date: 20140926
  Receipt Date: 20150403
  Transmission Date: 20150821
  Serious: Yes (Other)
  Sender: FDA-Public Use
  Company Number: 2014-20371

PATIENT
  Age: 86 Year
  Sex: Male

DRUGS (1)
  1. EYLEA [Suspect]
     Active Substance: AFLIBERCEPT
     Indication: AGE-RELATED MACULAR DEGENERATION
     Route: 031
     Dates: start: 20140702, end: 20140702

REACTIONS (4)
  - Optical coherence tomography abnormal [None]
  - Visual field defect [None]
  - Cataract [None]
  - Retinal oedema [None]

NARRATIVE: CASE EVENT DATE: 20140915
